FAERS Safety Report 22156862 (Version 1)
Quarter: 2023Q1

REPORT INFORMATION
  Report Type: Spontaneous
  Country: US (occurrence: None)
  Receive Date: 20230329
  Receipt Date: 20230329
  Transmission Date: 20230417
  Serious: Yes (Hospitalization)
  Sender: FDA-Public Use
  Company Number: None

PATIENT
  Sex: Female

DRUGS (1)
  1. PROLIA [Suspect]
     Active Substance: DENOSUMAB
     Indication: Osteoporosis
     Dosage: 60 MG/ML SUBCUTANEOUS??NJECT 1 SYRINGE UNDER THE SKIN EVERY 6 MONTHS
     Route: 058
     Dates: start: 20220907

REACTIONS (1)
  - Hip arthroplasty [None]
